FAERS Safety Report 9002857 (Version 10)
Quarter: 2015Q4

REPORT INFORMATION
  Report Type: Spontaneous
  Country: US (occurrence: US)
  Receive Date: 20130108
  Receipt Date: 20151109
  Transmission Date: 20160305
  Serious: Yes (Other)
  Sender: FDA-Public Use
  Company Number: US-PFIZER INC-2013003729

PATIENT
  Age: 61 Year
  Sex: Female

DRUGS (4)
  1. CIPRO /00697201/ [Concomitant]
     Active Substance: CIPROFLOXACIN
     Indication: XEROSIS
     Dosage: UNK
     Dates: start: 2003, end: 2007
  2. SYNTHROID [Concomitant]
     Active Substance: LEVOTHYROXINE SODIUM
     Dosage: UNK
     Dates: start: 1952
  3. DETROL [Suspect]
     Active Substance: TOLTERODINE TARTRATE
     Indication: URINARY INCONTINENCE
     Dosage: UNK, 1X/DAY
     Dates: start: 2003, end: 2007
  4. DETROL LA [Suspect]
     Active Substance: TOLTERODINE TARTRATE
     Dosage: UNK

REACTIONS (21)
  - Autoimmune disorder [Recovered/Resolved]
  - White blood cell count increased [Not Recovered/Not Resolved]
  - Haemangioma [Unknown]
  - Pain [Unknown]
  - Aortic aneurysm [Unknown]
  - Gastritis [Unknown]
  - Freeman-Sheldon syndrome [Unknown]
  - General physical health deterioration [Unknown]
  - Sjogren^s syndrome [Not Recovered/Not Resolved]
  - Oesophageal infection [Unknown]
  - Oesophagitis [Unknown]
  - Bone disorder [Unknown]
  - Cerebral disorder [Unknown]
  - Gastric infection [Unknown]
  - Haemangioma of liver [Unknown]
  - Alopecia [Unknown]
  - Tinnitus [Unknown]
  - Xerosis [Not Recovered/Not Resolved]
  - Headache [Unknown]
  - Bladder disorder [Unknown]
  - Skin wrinkling [Unknown]

NARRATIVE: CASE EVENT DATE: 2005
